FAERS Safety Report 4507259-0 (Version None)
Quarter: 2004Q4

REPORT INFORMATION
  Report Type: 
  Country: None (occurrence: None)
  Receive Date: 20041025
  Receipt Date: 20040727
  Transmission Date: 20050328
  Serious: Yes (Hospitalization, Other)
  Sender: FDA-Public Use
  Company Number: US-JNJFOC-20040506024

PATIENT
  Age: 61 Year
  Sex: Female
  Weight: 62.5964 kg

DRUGS (7)
  1. REMICADE [Suspect]
     Indication: RHEUMATOID ARTHRITIS
     Dosage: INTRAVENOUS
     Route: 042
     Dates: start: 20020201
  2. TOPROL (METOPROLOL SUCCINATE) [Suspect]
     Indication: HYPERTENSION
     Dosage: 100 MG 2 IN 1 DAY ORAL
     Route: 048
     Dates: start: 20040616
  3. IMURAN [Concomitant]
  4. LESNESTINA (ALL OTHER THERAPEUTIC PRODUCTS) [Concomitant]
  5. VITAMIN B12 [Concomitant]
  6. CELESTAN (BETAMETHASONE) [Concomitant]
  7. LODINE [Concomitant]

REACTIONS (2)
  - CHILLS [None]
  - LOSS OF CONSCIOUSNESS [None]
